FAERS Safety Report 6897730-9 (Version None)
Quarter: 2010Q3

REPORT INFORMATION
  Report Type: 
  Country: None (occurrence: None)
  Receive Date: 20100802
  Receipt Date: 20070718
  Transmission Date: 20110219
  Serious: Yes (Other)
  Sender: FDA-Public Use
  Company Number: US-PFIZER INC-2007052239

PATIENT
  Sex: Female
  Weight: 90.7 kg

DRUGS (12)
  1. LYRICA [Suspect]
     Indication: PAIN IN EXTREMITY
     Dates: start: 20060101
  2. LYRICA [Suspect]
     Indication: PAIN
  3. LYRICA [Suspect]
     Indication: NEURALGIA
  4. SYNTHROID [Concomitant]
  5. PREMARIN [Concomitant]
  6. NEXIUM [Concomitant]
  7. TOPAMAX [Concomitant]
  8. VITAMIN E [Concomitant]
  9. VITAMIN B-12 [Concomitant]
  10. VITAMIN B6 [Concomitant]
  11. FLAXSEED OIL [Concomitant]
  12. METHOCARBAMOL [Concomitant]

REACTIONS (2)
  - MYALGIA [None]
  - OEDEMA PERIPHERAL [None]
